FAERS Safety Report 6348796-6 (Version None)
Quarter: 2009Q3

REPORT INFORMATION
  Report Type: 
  Country: None (occurrence: None)
  Receive Date: 20090911
  Receipt Date: 20090901
  Transmission Date: 20100115
  Serious: Yes (Other)
  Sender: FDA-Public Use
  Company Number: US-AMGEN-QUU362771

PATIENT
  Sex: Male

DRUGS (1)
  1. ENBREL [Suspect]
     Indication: PSORIASIS
     Route: 058

REACTIONS (5)
  - BLOOD COUNT ABNORMAL [None]
  - INJECTION SITE NODULE [None]
  - INJECTION SITE PRURITUS [None]
  - PRECANCEROUS SKIN LESION [None]
  - RENAL DISORDER [None]
